FAERS Safety Report 10389015 (Version 2)
Quarter: 2014Q3

REPORT INFORMATION
  Report Type: Report from Study
  Country: US (occurrence: None)
  Receive Date: 20140812
  Receipt Date: 20140922
  Transmission Date: 20150326
  Serious: Yes (Hospitalization)
  Sender: FDA-Public Use
  Company Number: 2014US003113

PATIENT
  Age: 44 Year
  Sex: Male
  Weight: 112 kg

DRUGS (18)
  1. LEXAPRO [Concomitant]
     Active Substance: ESCITALOPRAM OXALATE
  2. FLAX OIL [Concomitant]
  3. VITAMIN B12 [Concomitant]
     Active Substance: CYANOCOBALAMIN
  4. ASPIRIN (ASPIRIN) [Concomitant]
     Active Substance: ASPIRIN
  5. MULTIVITAMIN AND MINERAL SUPPLEMENT (MINERALS NOS, VITAMIN NOS) [Concomitant]
  6. PHENERGAN [Concomitant]
     Active Substance: PROMETHAZINE HYDROCHLORIDE
  7. PONATINIB (AP24534) TABLET [Suspect]
     Active Substance: PONATINIB
     Indication: CHRONIC MYELOID LEUKAEMIA
     Route: 048
     Dates: start: 20110331
  8. ZIAC (BISOPROLOL FUMARATE, HYDROCHLOROTHIAZIDE) [Concomitant]
  9. ZANAFLEX [Concomitant]
     Active Substance: TIZANIDINE HYDROCHLORIDE
  10. ALUMINIUM HYDROXIDE W/MAGNESIUM HYDROXIDE (ALUMINIUM HYROXIDE W/MAGNESIUM HYDROXIDE) [Concomitant]
  11. CLONIDINE (CLONIDINE HYDROCHLORIDE) [Concomitant]
  12. ZANTAR (RANITIDINE HYDROCHLORIDE) [Concomitant]
  13. CEPHALEXIN (CEFALEXIN MONOHYDRATE) [Concomitant]
  14. OXYCODONE (OXYCODONE HYDROCHLORIDE) [Concomitant]
  15. SIMVASTATIN (SIMVASTATIN) [Concomitant]
     Active Substance: SIMVASTATIN
  16. ZOFRAN (ONDANSETRON HYDROCHLORIDE) [Concomitant]
  17. ATIVAN [Concomitant]
     Active Substance: LORAZEPAM
  18. DPHENHYDRAMIN (DIPHENHYDRAMINE HYDROCHLORIDE) [Concomitant]

REACTIONS (5)
  - Wound infection [None]
  - Lipase increased [None]
  - Haematoma [None]
  - Wound dehiscence [None]
  - Neck pain [None]

NARRATIVE: CASE EVENT DATE: 20121106
